FAERS Safety Report 10013391 (Version 1)
Quarter: 2014Q1

REPORT INFORMATION
  Report Type: Spontaneous
  Country: US (occurrence: US)
  Receive Date: 20140314
  Receipt Date: 20140314
  Transmission Date: 20141002
  Serious: No
  Sender: FDA-Public Use
  Company Number: US-PFIZER INC-2014073863

PATIENT
  Age: 20 Year
  Sex: Female
  Weight: 113.83 kg

DRUGS (1)
  1. VENLAFAXINE HCL [Suspect]
     Indication: DEPRESSION
     Dosage: 150 MG, 2X/DAY
     Dates: start: 200909, end: 201305

REACTIONS (3)
  - Cardiac disorder [Unknown]
  - Blood pressure abnormal [Unknown]
  - Sleep apnoea syndrome [Unknown]
